FAERS Safety Report 19057358 (Version 2)
Quarter: 2021Q1

REPORT INFORMATION
  Report Type: Spontaneous
  Country: IN (occurrence: IN)
  Receive Date: 20210325
  Receipt Date: 20210329
  Transmission Date: 20210420
  Serious: No
  Sender: FDA-Public Use
  Company Number: IN-PFIZER INC-2021304675

PATIENT
  Age: 58 Year
  Sex: Female

DRUGS (1)
  1. LORBRIQUA [Suspect]
     Active Substance: LORLATINIB
     Indication: NON-SMALL CELL LUNG CANCER
     Dosage: 100 MG, 1X/DAY
     Route: 048
     Dates: start: 20210316

REACTIONS (1)
  - Off label use [Unknown]
